FAERS Safety Report 5701164-X (Version None)
Quarter: 2008Q2

REPORT INFORMATION
  Report Type: 
  Country: None (occurrence: None)
  Receive Date: 20080410
  Receipt Date: 20080328
  Transmission Date: 20081010
  Serious: Yes (Death, Hospitalization)
  Sender: FDA-Public Use
  Company Number: JP-AMGEN-US267533

PATIENT
  Sex: Male

DRUGS (11)
  1. ENBREL [Suspect]
     Indication: RHEUMATOID ARTHRITIS
     Route: 058
     Dates: start: 20070605, end: 20071114
  2. PREDNISOLONE [Concomitant]
     Indication: RHEUMATOID ARTHRITIS
     Route: 048
  3. SELBEX [Concomitant]
     Indication: GASTRITIS
     Route: 048
  4. DEPAS [Concomitant]
     Indication: INSOMNIA
     Route: 048
  5. DILTIAZEM HCL [Concomitant]
     Indication: ANGINA PECTORIS
     Route: 048
  6. ERYTHROCIN [Concomitant]
     Route: 048
  7. GLYSENNID [Concomitant]
     Indication: CONSTIPATION
     Route: 048
  8. MAGNESIUM OXIDE [Concomitant]
     Indication: CONSTIPATION
     Route: 048
  9. ASPIRIN [Concomitant]
     Indication: ANGINA PECTORIS
     Route: 048
  10. AMARYL [Concomitant]
     Indication: DIABETES MELLITUS
     Route: 048
  11. DIOVAN [Concomitant]
     Indication: HYPERTENSION
     Route: 048

REACTIONS (4)
  - ARTERY DISSECTION [None]
  - CONDITION AGGRAVATED [None]
  - FAT EMBOLISM [None]
  - RENAL FAILURE [None]
